FAERS Safety Report 4497556-X (Version None)
Quarter: 2004Q4

REPORT INFORMATION
  Report Type: 
  Country: None (occurrence: None)
  Receive Date: 20041104
  Receipt Date: 20041022
  Transmission Date: 20050328
  Serious: Yes (Other)
  Sender: FDA-Public Use
  Company Number: 2004082916

PATIENT
  Age: 44 Year
  Sex: Female

DRUGS (1)
  1. NEURONTIN [Suspect]
     Indication: NEUROPATHIC PAIN
     Dosage: 2400 MG (2400 MG, 1 IN 1 D), ORAL
     Route: 048
     Dates: start: 20011101

REACTIONS (1)
  - CARDIAC PACEMAKER INSERTION [None]
